FAERS Safety Report 6700149-4 (Version None)
Quarter: 2010Q2

REPORT INFORMATION
  Report Type: 
  Country: None (occurrence: None)
  Receive Date: 20100426
  Receipt Date: 20090403
  Transmission Date: 20101027
  Serious: Yes (Life-Threatening, Other)
  Sender: FDA-Public Use
  Company Number: WAES 0902USA00050

PATIENT
  Age: 57 Year
  Sex: Female
  Weight: 83.9154 kg

DRUGS (4)
  1. SINGULAIR [Suspect]
     Indication: HYPERSENSITIVITY
     Dosage: 10 MG/DAILY/PO
     Route: 048
     Dates: start: 20080912, end: 20080912
  2. CLARITIN [Concomitant]
  3. PULMICORT [Concomitant]
  4. ALBUTEROL [Concomitant]

REACTIONS (2)
  - ANAPHYLACTIC REACTION [None]
  - SWELLING [None]
